FAERS Safety Report 6236400-7 (Version None)
Quarter: 2009Q2

REPORT INFORMATION
  Report Type: 
  Country: None (occurrence: None)
  Receive Date: 20090619
  Receipt Date: 20090612
  Transmission Date: 20091009
  Serious: No
  Sender: FDA-Public Use
  Company Number: GB-JNJFOC-20090601614

PATIENT
  Sex: Female

DRUGS (2)
  1. DURAGESIC-100 [Suspect]
     Indication: PAIN
     Route: 062
  2. METOCLOPRAMIDE [Concomitant]
     Indication: NAUSEA

REACTIONS (2)
  - DEVICE ADHESION ISSUE [None]
  - WRONG TECHNIQUE IN DRUG USAGE PROCESS [None]
